FAERS Safety Report 25789525 (Version 2)
Quarter: 2025Q4

REPORT INFORMATION
  Report Type: Spontaneous
  Country: CH (occurrence: CH)
  Receive Date: 20250911
  Receipt Date: 20251010
  Transmission Date: 20260118
  Serious: Yes (Death)
  Sender: CSL BEHRING
  Company Number: CH-BEH-2025218435

PATIENT

DRUGS (3)
  1. DIFELIKEFALIN ACETATE [Suspect]
     Active Substance: DIFELIKEFALIN ACETATE
     Dosage: UNK
     Route: 065
     Dates: start: 20230408
  2. DIFELIKEFALIN ACETATE [Suspect]
     Active Substance: DIFELIKEFALIN ACETATE
     Dosage: UNK
     Route: 065
  3. DIFELIKEFALIN ACETATE [Suspect]
     Active Substance: DIFELIKEFALIN ACETATE
     Dosage: UNK
     Route: 065

REACTIONS (2)
  - Cerebral haemorrhage [Fatal]
  - Fatigue [Unknown]
